FAERS Safety Report 24418996 (Version 1)
Quarter: 2024Q4

REPORT INFORMATION
  Report Type: Spontaneous
  Country: ES (occurrence: ES)
  Receive Date: 20241009
  Receipt Date: 20241009
  Transmission Date: 20250115
  Serious: Yes (Other)
  Sender: PFIZER
  Company Number: None

PATIENT
  Age: 45 Year
  Sex: Male
  Weight: 83 kg

DRUGS (4)
  1. AZITHROMYCIN [Suspect]
     Active Substance: AZITHROMYCIN
     Indication: Sexually transmitted disease
     Dosage: 500 MG, 1X/DAY
     Route: 048
     Dates: start: 20240229, end: 20240303
  2. CEFTRIAXONE [Suspect]
     Active Substance: CEFTRIAXONE
     Indication: Sexually transmitted disease
     Dosage: 500 MG
     Route: 030
     Dates: start: 20240301, end: 202403
  3. AMOXICILLIN\CLAVULANATE POTASSIUM [Suspect]
     Active Substance: AMOXICILLIN\CLAVULANATE POTASSIUM
     Indication: Pyrexia
     Dosage: 875MG/125MG, 3X/DAY (EVERY 8H)
     Route: 048
     Dates: start: 20240226, end: 20240229
  4. CIPROFLOXACIN [Suspect]
     Active Substance: CIPROFLOXACIN
     Indication: Sexually transmitted disease
     Dosage: 750 MG, SINGLE
     Route: 048
     Dates: start: 20240302, end: 20240302

REACTIONS (1)
  - Mixed liver injury [Recovering/Resolving]

NARRATIVE: CASE EVENT DATE: 20240303
